FAERS Safety Report 4927828-3 (Version None)
Quarter: 2006Q1

REPORT INFORMATION
  Report Type: 
  Country: None (occurrence: None)
  Receive Date: 20060127
  Receipt Date: 20051031
  Transmission Date: 20060701
  Serious: Yes (Other)
  Sender: FDA-Public Use
  Company Number: 2005133109

PATIENT
  Age: 49 Year
  Sex: Female
  Weight: 72.5755 kg

DRUGS (4)
  1. LYRICA [Suspect]
     Indication: MYALGIA
     Dosage: 150 MG (75 MG, 1 IN 1 D)ORAL
     Route: 048
     Dates: start: 20050909, end: 20050901
  2. LYRICA [Suspect]
     Indication: NEURALGIA
     Dosage: 150 MG (75 MG, 1 IN 1 D)ORAL
     Route: 048
     Dates: start: 20050909, end: 20050901
  3. PROZAC [Concomitant]
  4. ALL OTHER THERAPEUTIC PRODUCTS [Concomitant]

REACTIONS (4)
  - DRUG INEFFECTIVE [None]
  - FEELING ABNORMAL [None]
  - IRRITABILITY [None]
  - MALAISE [None]
